FAERS Safety Report 20518131 (Version 1)
Quarter: 2022Q1

REPORT INFORMATION
  Report Type: Spontaneous
  Country: US (occurrence: US)
  Receive Date: 20220225
  Receipt Date: 20220225
  Transmission Date: 20220423
  Serious: No
  Sender: FDA-Public Use
  Company Number: US-MYLANLABS-2022M1006981

PATIENT
  Age: 68 Year
  Sex: Female
  Weight: 54.43 kg

DRUGS (2)
  1. GLATIRAMER [Suspect]
     Active Substance: GLATIRAMER
     Indication: Product used for unknown indication
     Dosage: UNK, 3XW
     Route: 058
     Dates: start: 20211004
  2. DEVICE [Suspect]
     Active Substance: DEVICE
     Indication: Product used for unknown indication
     Dosage: UNK
     Dates: start: 20211006

REACTIONS (2)
  - Injection site pain [Unknown]
  - Device use issue [Unknown]

NARRATIVE: CASE EVENT DATE: 20211004
